FAERS Safety Report 5280677-1 (Version None)
Quarter: 2007Q1

REPORT INFORMATION
  Report Type: 
  Country: None (occurrence: None)
  Receive Date: 20070329
  Receipt Date: 20070319
  Transmission Date: 20070707
  Serious: Yes (Hospitalization)
  Sender: FDA-Public Use
  Company Number: GB-PFIZER INC-2007023334

PATIENT
  Age: 67 Year
  Sex: Male

DRUGS (1)
  1. SULFASALAZINE [Suspect]

REACTIONS (1)
  - GASTROSTOMY TUBE INSERTION [None]
